FAERS Safety Report 24994844 (Version 1)
Quarter: 2025Q1

REPORT INFORMATION
  Report Type: Report from Study
  Country: US (occurrence: US)
  Receive Date: 20250221
  Receipt Date: 20250221
  Transmission Date: 20250409
  Serious: Yes (Other)
  Sender: ROCHE
  Company Number: US-ROCHE-10000210114

PATIENT
  Age: 23 Year
  Sex: Male
  Weight: 76 kg

DRUGS (18)
  1. XOLAIR PFS [Suspect]
     Active Substance: OMALIZUMAB
     Indication: Milk allergy
     Dosage: LAST INJECTION DATE:18-JAN-2025
     Route: 058
  2. XOLAIR PFS [Suspect]
     Active Substance: OMALIZUMAB
  3. VITAMIN C [Concomitant]
     Active Substance: ASCORBIC ACID
  4. KETOTIFEN FUMARATE [Concomitant]
     Active Substance: KETOTIFEN FUMARATE
  5. ALBUTEROL [Concomitant]
     Active Substance: ALBUTEROL
  6. ALBUTEROL SULFATE [Concomitant]
     Active Substance: ALBUTEROL SULFATE
  7. CETIRIZINE HCL [Concomitant]
     Active Substance: CETIRIZINE HYDROCHLORIDE
  8. DYMISTA [Concomitant]
     Active Substance: AZELASTINE HYDROCHLORIDE\FLUTICASONE PROPIONATE
  9. EPIPEN [Concomitant]
     Active Substance: EPINEPHRINE
  10. GASTROCROM [Concomitant]
     Active Substance: CROMOLYN SODIUM
  11. IPRATROPIUM [Concomitant]
     Active Substance: IPRATROPIUM
  12. PREDNISOLONE [Concomitant]
     Active Substance: PREDNISOLONE
  13. SYMBICORT [Concomitant]
     Active Substance: BUDESONIDE\FORMOTEROL FUMARATE DIHYDRATE
  14. VITAMIN D3 [Concomitant]
     Active Substance: CHOLECALCIFEROL
  15. XYZAL [Concomitant]
     Active Substance: LEVOCETIRIZINE DIHYDROCHLORIDE
  16. LORATADINE [Concomitant]
     Active Substance: LORATADINE
  17. SINGULAIR [Concomitant]
     Active Substance: MONTELUKAST SODIUM
  18. ZINC [Concomitant]
     Active Substance: ZINC

REACTIONS (10)
  - Mast cell activation syndrome [Unknown]
  - Dysphagia [Unknown]
  - Nausea [Unknown]
  - Vomiting [Unknown]
  - Influenza [Unknown]
  - Nasal congestion [Unknown]
  - Diarrhoea [Unknown]
  - Rhinitis allergic [Unknown]
  - Abdominal pain [Unknown]
  - Anaphylactic shock [Unknown]
